FAERS Safety Report 9416522 (Version 1)
Quarter: 2013Q3

REPORT INFORMATION
  Report Type: Report from Study
  Country: IR (occurrence: IR)
  Receive Date: 20130724
  Receipt Date: 20130724
  Transmission Date: 20140515
  Serious: Yes (Other)
  Sender: FDA-Public Use
  Company Number: IR-MYLANLABS-2013S1015746

PATIENT
  Age: 63 Year
  Sex: Female

DRUGS (1)
  1. QUETIAPINE [Suspect]
     Route: 065

REACTIONS (1)
  - Drug-induced liver injury [Unknown]
